FAERS Safety Report 4456101-5 (Version None)
Quarter: 2004Q3

REPORT INFORMATION
  Report Type: 
  Country: None (occurrence: None)
  Receive Date: 20040920
  Receipt Date: 20040907
  Transmission Date: 20050211
  Serious: Yes (Hospitalization)
  Sender: FDA-Public Use
  Company Number: 2004-BP-07714RO

PATIENT
  Age: 75 Year
  Sex: Male

DRUGS (4)
  1. LEUCOVORIN CALCIUM [Suspect]
     Indication: COLON CANCER
     Dosage: SEE IMAGE
     Route: 048
     Dates: start: 20040622, end: 20040627
  2. LEUCOVORIN CALCIUM [Suspect]
     Indication: COLON CANCER
     Dosage: SEE IMAGE
     Route: 048
     Dates: start: 20040628, end: 20040719
  3. UFT [Suspect]
     Indication: COLON CANCER
     Dosage: SEE  IMAGE
     Route: 048
     Dates: start: 20040622, end: 20040627
  4. UFT [Suspect]
     Indication: COLON CANCER
     Dosage: SEE  IMAGE
     Route: 048
     Dates: start: 20040628, end: 20040719

REACTIONS (4)
  - COLON CANCER [None]
  - DECREASED APPETITE [None]
  - DISEASE PROGRESSION [None]
  - MENTAL DISORDER [None]
